FAERS Safety Report 15479277 (Version 2)
Quarter: 2018Q4

REPORT INFORMATION
  Report Type: Report from Study
  Country: None (occurrence: BR)
  Receive Date: 20181009
  Receipt Date: 20181010
  Transmission Date: 20190205
  Serious: Yes (Disabling)
  Sender: FDA-Public Use
  Company Number: BR-ABBVIE-18K-020-2509700-00

PATIENT
  Sex: Female

DRUGS (1)
  1. HUMIRA [Suspect]
     Active Substance: ADALIMUMAB
     Indication: RHEUMATOID ARTHRITIS
     Route: 058
     Dates: start: 20180508, end: 201809

REACTIONS (5)
  - Anaemia [Unknown]
  - Malaise [Unknown]
  - Muscular weakness [Unknown]
  - Disorientation [Unknown]
  - Mobility decreased [Unknown]

NARRATIVE: CASE EVENT DATE: 2018
